FAERS Safety Report 7624956-9 (Version None)
Quarter: 2011Q3

REPORT INFORMATION
  Report Type: 
  Country: None (occurrence: None)
  Receive Date: 20110721
  Receipt Date: 20110712
  Transmission Date: 20111222
  Serious: Yes (Life-Threatening, Hospitalization)
  Sender: FDA-Public Use
  Company Number: JP-BRISTOL-MYERS SQUIBB COMPANY-15881899

PATIENT
  Age: 63 Year
  Sex: Female

DRUGS (9)
  1. METFORMIN HCL [Suspect]
     Indication: DIABETES MELLITUS
     Route: 048
     Dates: end: 20101123
  2. MIGLITOL [Suspect]
     Indication: DIABETES MELLITUS
     Route: 048
     Dates: end: 20101123
  3. VITANEURIN [Concomitant]
     Route: 048
     Dates: end: 20101123
  4. AMARYL [Suspect]
     Indication: DIABETES MELLITUS
     Route: 048
     Dates: end: 20101123
  5. ALDACTONE [Concomitant]
     Route: 048
     Dates: end: 20101123
  6. LAXOBERON [Concomitant]
     Route: 048
     Dates: end: 20101123
  7. HYDROCHLOROTHIAZIDE [Concomitant]
     Route: 048
     Dates: end: 20101123
  8. MAGMITT [Concomitant]
     Route: 048
     Dates: end: 20101123
  9. ACTOS [Suspect]
     Indication: DIABETES MELLITUS
     Route: 048
     Dates: end: 20101123

REACTIONS (4)
  - HYPOKALAEMIA [None]
  - LACTIC ACIDOSIS [None]
  - HYPOGLYCAEMIA [None]
  - RENAL FAILURE ACUTE [None]
